FAERS Safety Report 6162759-5 (Version None)
Quarter: 2009Q2

REPORT INFORMATION
  Report Type: 
  Country: None (occurrence: None)
  Receive Date: 20090421
  Receipt Date: 20080513
  Transmission Date: 20091009
  Serious: No
  Sender: FDA-Public Use
  Company Number: US-ASTRAZENECA-2008UW09847

PATIENT
  Age: 75 Year
  Sex: Male
  Weight: 81.6 kg

DRUGS (8)
  1. TOPROL-XL [Suspect]
     Indication: HEART RATE INCREASED
     Route: 048
  2. TOPROL-XL [Interacting]
     Indication: HYPERTENSION
     Route: 048
  3. TUMS [Interacting]
  4. PLAVIX [Concomitant]
  5. ANAFRANIL [Concomitant]
  6. ISOSORBIDE DINITRATE [Concomitant]
  7. CRESTOR [Concomitant]
  8. NITROGLYCERIN [Concomitant]

REACTIONS (3)
  - DRUG INTERACTION [None]
  - HEART RATE INCREASED [None]
  - HEART RATE IRREGULAR [None]
